FAERS Safety Report 8567436 (Version 6)
Quarter: 2015Q3

REPORT INFORMATION
  Report Type: Report from Study
  Country: DE (occurrence: DE)
  Receive Date: 20120517
  Receipt Date: 20150910
  Transmission Date: 20151125
  Serious: Yes (Death, Hospitalization)
  Sender: FDA-Public Use
  Company Number: DE-ROCHE-1066085

PATIENT
  Age: 65 Year
  Sex: Female
  Weight: 46.4 kg

DRUGS (9)
  1. CARBOPLATIN. [Suspect]
     Active Substance: CARBOPLATIN
     Dosage: AUC 5, LAST DOSE:15/MAY/2012
     Route: 042
     Dates: end: 20120610
  2. BEVACIZUMAB [Suspect]
     Active Substance: BEVACIZUMAB
     Indication: OVARIAN CANCER
     Route: 042
     Dates: start: 20120321, end: 20120418
  3. PACLITAXEL. [Suspect]
     Active Substance: PACLITAXEL
     Dosage: LAST DOSE:15/MAY/2012
     Route: 042
     Dates: end: 20120610
  4. ZOLPIDEM [Concomitant]
     Active Substance: ZOLPIDEM\ZOLPIDEM TARTRATE
     Dosage: 2 UNITS DAILY
     Route: 048
     Dates: start: 20120502
  5. CARBOPLATIN. [Suspect]
     Active Substance: CARBOPLATIN
     Indication: OVARIAN CANCER
     Dosage: AUC 5,
     Route: 042
     Dates: start: 20120227, end: 20120418
  6. PANTOPRAZOLE SODIUM. [Concomitant]
     Active Substance: PANTOPRAZOLE SODIUM
     Dosage: 2 UNITS DAILY
     Route: 048
     Dates: start: 20120502
  7. PACLITAXEL. [Suspect]
     Active Substance: PACLITAXEL
     Indication: OVARIAN CANCER
     Dosage: LAST DOSE:15/MAY/2012
     Route: 042
     Dates: start: 20120227, end: 20120418
  8. BEVACIZUMAB [Suspect]
     Active Substance: BEVACIZUMAB
     Dosage: LAST DOSE:15/MAY/2012
     Route: 042
     Dates: end: 20120610
  9. NOVALGIN [Concomitant]
     Active Substance: METAMIZOLE SODIUM
     Indication: PAIN
     Dosage: 2 UNIT DAILY
     Route: 048
     Dates: start: 20120502

REACTIONS (9)
  - Fatigue [Recovered/Resolved]
  - Infection [Not Recovered/Not Resolved]
  - Anaemia [Not Recovered/Not Resolved]
  - Sepsis [Fatal]
  - Weight decreased [Not Recovered/Not Resolved]
  - Fistula [Not Recovered/Not Resolved]
  - Decreased appetite [Not Recovered/Not Resolved]
  - General physical health deterioration [Not Recovered/Not Resolved]
  - Nausea [Not Recovered/Not Resolved]

NARRATIVE: CASE EVENT DATE: 20120502
